FAERS Safety Report 25922310 (Version 1)
Quarter: 2025Q4

REPORT INFORMATION
  Report Type: Spontaneous
  Country: EU (occurrence: EU)
  Receive Date: 20251015
  Receipt Date: 20251015
  Transmission Date: 20260117
  Serious: Yes (Life-Threatening, Other)
  Sender: AUROBINDO
  Company Number: EU-AFSSAPS-AM2025000750

PATIENT
  Age: 17 Year
  Sex: Female
  Weight: 62 kg

DRUGS (3)
  1. METFORMIN [Suspect]
     Active Substance: METFORMIN HYDROCHLORIDE
     Indication: Product used for unknown indication
     Dosage: UNK
     Route: 048
     Dates: start: 20250909, end: 20250909
  2. NOVORAPID [Suspect]
     Active Substance: INSULIN ASPART
     Indication: Toxicity to various agents
     Dosage: 600 INTERNATIONAL UNIT 1 TOTAL
     Route: 058
     Dates: start: 20250909, end: 20250909
  3. LANTUS [Suspect]
     Active Substance: INSULIN GLARGINE
     Indication: Product used for unknown indication
     Dosage: 300 INTERNATIONAL UNIT 1 TOTAL
     Route: 048
     Dates: start: 20250909, end: 20250909

REACTIONS (3)
  - Lactic acidosis [Recovered/Resolved]
  - Hypoglycaemic coma [Recovered/Resolved]
  - Toxicity to various agents [Recovered/Resolved]

NARRATIVE: CASE EVENT DATE: 20250909
